FAERS Safety Report 9429134 (Version 1)
Quarter: 2013Q3

REPORT INFORMATION
  Report Type: Spontaneous
  Country: JP (occurrence: JP)
  Receive Date: 20130730
  Receipt Date: 20130730
  Transmission Date: 20140515
  Serious: Yes (Hospitalization)
  Sender: FDA-Public Use
  Company Number: JP-ELI_LILLY_AND_COMPANY-JP201305007409

PATIENT
  Age: 91 Year
  Sex: Female

DRUGS (4)
  1. FORTEO [Suspect]
     Indication: OSTEOPOROSIS
     Dosage: 20 UG, QD
     Route: 058
     Dates: start: 20130513, end: 2013
  2. LYRICA [Concomitant]
     Indication: CERVICAL MYELOPATHY
     Dosage: UNK
     Route: 048
  3. OLMETEC [Concomitant]
     Dosage: UNK
     Route: 048
  4. BIFIDOBACTERIUM BIFIDUM [Concomitant]
     Dosage: UNK
     Route: 048

REACTIONS (3)
  - Malaise [Unknown]
  - Hypophagia [Unknown]
  - Oedema peripheral [Recovered/Resolved]
